FAERS Safety Report 7579594-3 (Version None)
Quarter: 2011Q2

REPORT INFORMATION
  Report Type: 
  Country: None (occurrence: None)
  Receive Date: 20110622
  Receipt Date: 20110608
  Transmission Date: 20111010
  Serious: Yes (Hospitalization)
  Sender: FDA-Public Use
  Company Number: PIR#400102871

PATIENT
  Age: 5 Year
  Sex: Male

DRUGS (1)
  1. CEFTRIAXONE [Suspect]

REACTIONS (27)
  - PYREXIA [None]
  - PROTHROMBIN TIME PROLONGED [None]
  - ACTIVATED PARTIAL THROMBOPLASTIN TIME PROLONGED [None]
  - OEDEMA [None]
  - ABDOMINAL DISTENSION [None]
  - MULTI-ORGAN FAILURE [None]
  - PLATELET COUNT DECREASED [None]
  - OXYGEN SATURATION DECREASED [None]
  - LUNG INFILTRATION [None]
  - RENAL FAILURE ACUTE [None]
  - ANAPHYLACTIC SHOCK [None]
  - BACK PAIN [None]
  - EYE SWELLING [None]
  - RALES [None]
  - LIVER TENDERNESS [None]
  - BLOOD BILIRUBIN INCREASED [None]
  - CONVULSION [None]
  - LETHARGY [None]
  - CARDIAC MURMUR [None]
  - ASPARTATE AMINOTRANSFERASE INCREASED [None]
  - ALANINE AMINOTRANSFERASE INCREASED [None]
  - HYPERTENSION [None]
  - PERITONEAL DIALYSIS [None]
  - HAEMOGLOBIN DECREASED [None]
  - COUGH [None]
  - ACUTE CHEST SYNDROME [None]
  - CYANOSIS [None]
